FAERS Safety Report 5904766-0 (Version None)
Quarter: 2008Q4

REPORT INFORMATION
  Report Type: 
  Country: None (occurrence: None)
  Receive Date: 20081001
  Receipt Date: 20080924
  Transmission Date: 20090506
  Serious: Yes (Hospitalization)
  Sender: FDA-Public Use
  Company Number: FR-ABBOTT-08P-056-0478067-00

PATIENT
  Sex: Male

DRUGS (5)
  1. DEPAKENE [Suspect]
     Indication: CONVULSION PROPHYLAXIS
     Dosage: 100 MG/ML; 2000 MG DAILY
     Route: 041
     Dates: start: 20080824, end: 20080825
  2. DEPAKENE [Suspect]
     Route: 040
     Dates: start: 20080823, end: 20080823
  3. DEPAKENE [Suspect]
     Dosage: 1200 MG DAILY
     Route: 041
     Dates: start: 20080823, end: 20080823
  4. TRAMADOL HCL [Concomitant]
     Indication: DRUG USE FOR UNKNOWN INDICATION
  5. ACETAMINOPHEN [Concomitant]
     Indication: DRUG USE FOR UNKNOWN INDICATION

REACTIONS (2)
  - BICYTOPENIA [None]
  - PANCYTOPENIA [None]
